FAERS Safety Report 21620270 (Version 1)
Quarter: 2022Q4

REPORT INFORMATION
  Report Type: Report from Study
  Country: US (occurrence: US)
  Receive Date: 20221121
  Receipt Date: 20221121
  Transmission Date: 20230112
  Serious: Yes (Other)
  Sender: FDA-Public Use
  Company Number: US-BRISTOL-MYERS SQUIBB COMPANY-2022-138827

PATIENT
  Age: 63 Year
  Sex: Female
  Weight: 54.43 kg

DRUGS (7)
  1. ORENCIA [Suspect]
     Active Substance: ABATACEPT
     Indication: Rheumatoid arthritis
     Dosage: DOSE: UNAVAILABLE; FREQ: WEEKLY
     Route: 058
     Dates: start: 202201
  2. Covid vaccines [Concomitant]
     Indication: Product used for unknown indication
     Route: 065
     Dates: start: 202205
  3. Covid vaccines [Concomitant]
     Route: 065
     Dates: start: 202111
  4. PROLIA [Concomitant]
     Active Substance: DENOSUMAB
     Indication: Osteopenia
     Dosage: TWICE YEARLY, SUBQ INJECTION
     Route: 058
  5. PROLIA [Concomitant]
     Active Substance: DENOSUMAB
     Indication: Osteoporosis
  6. PREDNISONE [Concomitant]
     Active Substance: PREDNISONE
     Indication: Product used for unknown indication
     Dosage: LOW DOSE
     Route: 065
  7. IBUPROFEN [Concomitant]
     Active Substance: IBUPROFEN
     Indication: Product used for unknown indication
     Dosage: 2-3 TIMES PER DAY AS NEEDED
     Route: 065

REACTIONS (2)
  - COVID-19 [Recovered/Resolved]
  - Bronchopulmonary aspergillosis allergic [Unknown]

NARRATIVE: CASE EVENT DATE: 20220801
